FAERS Safety Report 5890903-3 (Version None)
Quarter: 2008Q3

REPORT INFORMATION
  Report Type: 
  Country: None (occurrence: None)
  Receive Date: 20080922
  Receipt Date: 20080912
  Transmission Date: 20090109
  Serious: Yes (Hospitalization)
  Sender: FDA-Public Use
  Company Number: A0662543A

PATIENT
  Age: 28 Year
  Sex: Female
  Weight: 56.3 kg

DRUGS (2)
  1. LAPATINIB [Suspect]
     Dosage: 1000MG IN THE MORNING
     Route: 048
     Dates: start: 20070203, end: 20070620
  2. CAPECITABINE [Suspect]
     Dosage: 1000MG TWICE PER DAY
     Route: 048
     Dates: start: 20070203, end: 20070620

REACTIONS (1)
  - THROMBOSIS [None]
